FAERS Safety Report 8353312-3 (Version None)
Quarter: 2012Q2

REPORT INFORMATION
  Report Type: 
  Country: None (occurrence: None)
  Receive Date: 20120511
  Receipt Date: 20120504
  Transmission Date: 20120825
  Serious: Yes (Other)
  Sender: FDA-Public Use
  Company Number: PHEH2012US009863

PATIENT
  Sex: Male

DRUGS (7)
  1. EXFORGE [Concomitant]
     Dosage: 320 MG, DAILY
     Route: 048
  2. VITAMIN B COMPLEX CAP [Concomitant]
     Route: 048
  3. NAPROXEN (ALEVE) [Concomitant]
     Dosage: 220 MG, PRN
     Route: 048
  4. FLOMAX [Concomitant]
     Dosage: 0.4 MG, DAILY
     Route: 048
  5. MULTI-VITAMINS [Concomitant]
     Route: 048
  6. VITAMIN D [Concomitant]
     Route: 048
  7. SANDOSTATIN LAR [Suspect]
     Indication: ACROMEGALY
     Dosage: 40 MG, UNK
     Route: 030
     Dates: start: 20090520, end: 20120504

REACTIONS (2)
  - MOVEMENT DISORDER [None]
  - MALIGNANT MELANOMA [None]
